FAERS Safety Report 7872910-4 (Version None)
Quarter: 2011Q4

REPORT INFORMATION
  Report Type: 
  Country: None (occurrence: None)
  Receive Date: 20111030
  Receipt Date: 20110429
  Transmission Date: 20120403
  Serious: No
  Sender: FDA-Public Use
  Company Number: US-AMGEN-USASP2011012510

PATIENT
  Age: 76 Year
  Sex: Female

DRUGS (2)
  1. ENBREL [Suspect]
     Indication: PSORIATIC ARTHROPATHY
     Dosage: 50 MG, QWK
     Dates: start: 20050623, end: 20110331
  2. ENBREL [Suspect]
     Indication: PSORIASIS
     Dates: start: 20050623, end: 20110331

REACTIONS (8)
  - OEDEMA PERIPHERAL [None]
  - ARTHRITIS [None]
  - NAIL BED BLEEDING [None]
  - PSORIASIS [None]
  - ONYCHOMADESIS [None]
  - PIGMENTATION DISORDER [None]
  - DRUG EFFECT DECREASED [None]
  - INJECTION SITE HAEMORRHAGE [None]
